FAERS Safety Report 7890154-7 (Version None)
Quarter: 2011Q4

REPORT INFORMATION
  Report Type: 
  Country: None (occurrence: None)
  Receive Date: 20111103
  Receipt Date: 20111103
  Transmission Date: 20120403
  Serious: Yes (Hospitalization)
  Sender: FDA-Public Use
  Company Number: US-B.I. PHARMACEUTICALS,INC./RIDGEFIELD-2011-BP-03862BP

PATIENT
  Age: 94 Year
  Sex: Male

DRUGS (3)
  1. ASPIRIN [Concomitant]
     Indication: STENT PLACEMENT
     Dates: start: 20110101
  2. PLAVIX [Concomitant]
     Indication: STENT PLACEMENT
     Dates: start: 20110101
  3. PRADAXA [Suspect]
     Indication: ATRIAL FIBRILLATION
     Dosage: 150 MG
     Dates: start: 20101221

REACTIONS (1)
  - EPISTAXIS [None]
